FAERS Safety Report 5976081-0 (Version None)
Quarter: 2008Q4

REPORT INFORMATION
  Report Type: 
  Country: None (occurrence: None)
  Receive Date: 20081202
  Receipt Date: 20081120
  Transmission Date: 20090506
  Serious: Yes (Hospitalization)
  Sender: FDA-Public Use
  Company Number: US-CELGENEUS-163-20785-08111083

PATIENT
  Sex: Male

DRUGS (2)
  1. THALOMID [Suspect]
     Route: 048
     Dates: start: 20080820
  2. THALOMID [Suspect]
     Dates: start: 20081001

REACTIONS (2)
  - ADVERSE DRUG REACTION [None]
  - ASTHENIA [None]
